FAERS Safety Report 9422451 (Version 1)
Quarter: 2013Q3

REPORT INFORMATION
  Report Type: Spontaneous
  Country: GR (occurrence: GR)
  Receive Date: 20130726
  Receipt Date: 20130726
  Transmission Date: 20140515
  Serious: Yes (Hospitalization, Other)
  Sender: FDA-Public Use
  Company Number: GR-ROCHE-1248310

PATIENT
  Age: 61 Year
  Sex: Male

DRUGS (3)
  1. AVASTIN [Suspect]
     Indication: LUNG NEOPLASM MALIGNANT
     Route: 042
     Dates: start: 20130709
  2. ALIMTA [Concomitant]
     Indication: LUNG NEOPLASM MALIGNANT
     Dosage: DOSE: 94 CM3
     Route: 065
     Dates: start: 20130709
  3. CISPLATIN [Concomitant]
     Indication: LUNG NEOPLASM MALIGNANT
     Route: 065
     Dates: start: 20130709

REACTIONS (2)
  - Acute myocardial infarction [Not Recovered/Not Resolved]
  - Respiratory failure [Not Recovered/Not Resolved]
